FAERS Safety Report 8027747-2 (Version None)
Quarter: 2012Q1

REPORT INFORMATION
  Report Type: 
  Country: None (occurrence: None)
  Receive Date: 20120106
  Receipt Date: 20120106
  Transmission Date: 20120608
  Serious: Yes (Other)
  Sender: FDA-Public Use
  Company Number: None

PATIENT
  Sex: Female

DRUGS (7)
  1. AZITHROMYACIN [Concomitant]
  2. NEURONTIN [Concomitant]
  3. RELAFIN [Concomitant]
  4. ETHAMBUTOL HYDROCHLORIDE [Suspect]
     Indication: MYCOBACTERIUM AVIUM COMPLEX INFECTION
     Dosage: 4 TABLETS
     Route: 048
     Dates: start: 20110525, end: 20111026
  5. NEXIUM [Concomitant]
  6. LIPITOR [Concomitant]
  7. RIFAMPIN [Concomitant]

REACTIONS (3)
  - BLINDNESS UNILATERAL [None]
  - IMPAIRED DRIVING ABILITY [None]
  - VISUAL IMPAIRMENT [None]
